FAERS Safety Report 23561938 (Version 1)
Quarter: 2024Q1

REPORT INFORMATION
  Report Type: Spontaneous
  Country: NL (occurrence: NL)
  Receive Date: 20240225
  Receipt Date: 20240225
  Transmission Date: 20240410
  Serious: Yes (Hospitalization, Other)
  Sender: FDA-Public Use
  Company Number: NL-ABBVIE-5626349

PATIENT
  Age: 75 Year
  Sex: Male

DRUGS (5)
  1. PREDNISONE [Suspect]
     Active Substance: PREDNISONE
     Indication: Product used for unknown indication
     Dosage: UNK
     Route: 065
     Dates: start: 202401
  2. VENETOCLAX [Suspect]
     Active Substance: VENETOCLAX
     Indication: Chronic lymphocytic leukaemia
     Dosage: 400 MILLIGRAM (STOPPED DATE JAN 2024)
     Route: 048
     Dates: end: 20240108
  3. VENETOCLAX [Suspect]
     Active Substance: VENETOCLAX
     Dosage: 200 MILLIGRAM
     Route: 048
     Dates: start: 20231204
  4. VENETOCLAX [Suspect]
     Active Substance: VENETOCLAX
     Dosage: UNK, STOPPED DATE JAN 2024
     Route: 048
     Dates: start: 20240120
  5. VENETOCLAX [Suspect]
     Active Substance: VENETOCLAX
     Dosage: 200 MILLIGRAM
     Route: 048
     Dates: start: 20240123

REACTIONS (2)
  - Chronic lymphocytic leukaemia [Unknown]
  - Rash [Unknown]

NARRATIVE: CASE EVENT DATE: 20240104
